FAERS Safety Report 19943325 (Version 3)
Quarter: 2021Q4

REPORT INFORMATION
  Report Type: Spontaneous
  Country: CA (occurrence: CA)
  Receive Date: 20211012
  Receipt Date: 20211108
  Transmission Date: 20220304
  Serious: Yes (Hospitalization, Other)
  Sender: FDA-Public Use
  Company Number: CA-BEH-2021136638

PATIENT
  Age: 61 Year
  Sex: Female
  Weight: 105 kg

DRUGS (1)
  1. PRIVIGEN [Suspect]
     Active Substance: HUMAN IMMUNOGLOBULIN G
     Indication: Immune thrombocytopenia
     Dosage: 1 DOSAGE FORM
     Route: 065
     Dates: start: 20210930, end: 20210930

REACTIONS (13)
  - Brain stem haemorrhage [Fatal]
  - Acute promyelocytic leukaemia [Fatal]
  - Febrile nonhaemolytic transfusion reaction [Recovered/Resolved]
  - Chills [Recovered/Resolved]
  - Tachycardia [Recovered/Resolved]
  - Hypertension [Recovered/Resolved]
  - Dyspnoea [Recovered/Resolved]
  - Tachypnoea [Recovered/Resolved]
  - Oxygen saturation decreased [Recovered/Resolved]
  - Back pain [Recovered/Resolved]
  - Dyspnoea [Recovered/Resolved]
  - Malaise [Recovered/Resolved]
  - Discomfort [Recovered/Resolved]

NARRATIVE: CASE EVENT DATE: 20210930
